FAERS Safety Report 10759523 (Version 3)
Quarter: 2015Q1

REPORT INFORMATION
  Report Type: Report from Study
  Country: BR (occurrence: BR)
  Receive Date: 20150203
  Receipt Date: 20150303
  Transmission Date: 20150721
  Serious: Yes (Life-Threatening, Other)
  Sender: FDA-Public Use
  Company Number: PHHY2015BR012043

PATIENT
  Sex: Female
  Weight: 104 kg

DRUGS (5)
  1. TEGRETOL [Suspect]
     Active Substance: CARBAMAZEPINE
     Indication: PETIT MAL EPILEPSY
     Dosage: 9 DF, QD
     Route: 048
     Dates: start: 1989
  2. TEGRETOL [Suspect]
     Active Substance: CARBAMAZEPINE
     Indication: PETIT MAL EPILEPSY
     Dosage: 2 DF, QD
     Route: 065
     Dates: start: 2013
  3. CARBAMAZEPINE. [Suspect]
     Active Substance: CARBAMAZEPINE
     Indication: PRODUCT USED FOR UNKNOWN INDICATION
     Dosage: (4/3 TABLETS) DF, QHS
     Route: 065
  4. TEGRETOL [Suspect]
     Active Substance: CARBAMAZEPINE
     Dosage: 3 DF, QD
     Route: 048
     Dates: start: 2013
  5. URBANIL [Concomitant]
     Active Substance: CLOBAZAM
     Indication: EPILEPSY
     Dosage: 1.5 DF, QD
     Route: 048

REACTIONS (10)
  - Hypoglycaemia [Recovered/Resolved]
  - Feeling of despair [Recovering/Resolving]
  - Agitation [Recovered/Resolved]
  - Epilepsy [Recovering/Resolving]
  - Memory impairment [Not Recovered/Not Resolved]
  - Injury [Unknown]
  - Seizure [Recovered/Resolved]
  - Insomnia [Recovering/Resolving]
  - Road traffic accident [Recovering/Resolving]
  - Weight increased [Not Recovered/Not Resolved]

NARRATIVE: CASE EVENT DATE: 1990
